FAERS Safety Report 13717093 (Version 1)
Quarter: 2017Q3

REPORT INFORMATION
  Report Type: Spontaneous
  Country: US (occurrence: US)
  Receive Date: 20170704
  Receipt Date: 20170704
  Transmission Date: 20171127
  Serious: Yes (Disabling)
  Sender: FDA-Public Use
  Company Number: None

PATIENT
  Age: 46 Year
  Sex: Female
  Weight: 66.6 kg

DRUGS (2)
  1. DULOXETIN [Suspect]
     Active Substance: DULOXETINE
     Indication: ARTHRALGIA
     Dosage: ?          OTHER STRENGTH:MG;QUANTITY:1 CAPSULE(S);?
     Route: 048
     Dates: start: 20140215, end: 20170601
  2. MULTI GREEN [Concomitant]

REACTIONS (5)
  - Withdrawal syndrome [None]
  - Laboratory test abnormal [None]
  - Paraesthesia [None]
  - Job dissatisfaction [None]
  - Weight increased [None]

NARRATIVE: CASE EVENT DATE: 20161205
